FAERS Safety Report 6662114-5 (Version None)
Quarter: 2010Q1

REPORT INFORMATION
  Report Type: 
  Country: None (occurrence: None)
  Receive Date: 20100331
  Receipt Date: 20100319
  Transmission Date: 20100710
  Serious: Yes (Other)
  Sender: FDA-Public Use
  Company Number: FR-CELGENEUS-056-21880-09081948

PATIENT
  Age: 78 Year
  Sex: Female

DRUGS (8)
  1. REVLIMID [Suspect]
     Indication: MULTIPLE MYELOMA
     Route: 048
     Dates: start: 20090423, end: 20090826
  2. ANTIHYPERTENSIVES [Concomitant]
     Route: 065
  3. LYRICA [Concomitant]
     Route: 065
     Dates: start: 20090713, end: 20090728
  4. RINOSTIL [Concomitant]
     Indication: DRUG USE FOR UNKNOWN INDICATION
     Route: 065
  5. LASIX [Concomitant]
     Indication: DRUG USE FOR UNKNOWN INDICATION
     Route: 065
  6. THALIDOMIDE [Concomitant]
     Indication: MULTIPLE MYELOMA
     Route: 048
     Dates: start: 20080405, end: 20090402
  7. MEPHALAN [Concomitant]
     Indication: MULTIPLE MYELOMA
     Route: 065
     Dates: start: 20090203, end: 20090416
  8. PREDNISONE [Interacting]
     Indication: MULTIPLE MYELOMA
     Route: 065
     Dates: start: 20090201, end: 20090401

REACTIONS (1)
  - OPTIC NEUROPATHY [None]
